FAERS Safety Report 8825866 (Version 2)
Quarter: 2012Q4

REPORT INFORMATION
  Report Type: 
  Country: US (occurrence: US)
  Receive Date: 20121005
  Receipt Date: 20121023
  Transmission Date: 20130627
  Serious: Yes (Hospitalization)
  Sender: FDA-Public Use
  Company Number: US-DX529-2012DX000218

PATIENT
  Age: 47 Year
  Sex: Female
  Weight: 110.22 kg

DRUGS (6)
  1. KALBITOR [Suspect]
     Indication: HEREDITARY ANGIOEDEMA
     Route: 058
     Dates: start: 20120304, end: 20120304
  2. KALBITOR [Suspect]
     Indication: HEREDITARY ANGIOEDEMA
     Route: 058
     Dates: start: 20120101
  3. KALBITOR [Suspect]
     Indication: HEREDITARY ANGIOEDEMA
     Route: 058
     Dates: start: 201204, end: 201204
  4. MORPHINE [Concomitant]
     Indication: BACK PAIN
  5. FIRAZYR [Concomitant]
     Indication: HEREDITARY ANGIOEDEMA
     Route: 058
     Dates: start: 20120910
  6. ALL OTHER THERAPEUTIC PRODUCTS [Concomitant]
     Indication: PRODUCT USED FOR UNKNOWN INDICATION

REACTIONS (6)
  - Nephrolithiasis [Recovered/Resolved]
  - Renal pain [Recovered/Resolved]
  - Inflammation [Recovered/Resolved]
  - Procedural complication [Recovered/Resolved]
  - Hereditary angioedema [Recovered/Resolved]
  - Pharyngeal oedema [None]
